FAERS Safety Report 9854683 (Version 2)
Quarter: 2014Q1

REPORT INFORMATION
  Report Type: Report from Study
  Country: CA (occurrence: CA)
  Receive Date: 20140130
  Receipt Date: 20140211
  Transmission Date: 20141002
  Serious: Yes (Life-Threatening, Hospitalization, Other)
  Sender: FDA-Public Use
  Company Number: CA-BRISTOL-MYERS SQUIBB COMPANY-20087680

PATIENT
  Age: 47 Year
  Sex: Female

DRUGS (7)
  1. ORENCIA [Suspect]
     Indication: RHEUMATOID ARTHRITIS
     Dosage: 1DF=750 UNIT NOS.16JAN14 INFUSION WAS CANCELLED
     Dates: start: 20140103
  2. ARAVA [Concomitant]
  3. PREDNISONE [Concomitant]
  4. FENTANYL PATCH [Concomitant]
  5. ASPIRIN [Concomitant]
  6. DOCUSATE [Concomitant]
  7. FOLIC ACID [Concomitant]

REACTIONS (8)
  - Dehydration [Recovered/Resolved]
  - Overdose [Unknown]
  - Fall [Unknown]
  - Joint injury [Unknown]
  - Fatigue [Unknown]
  - Vomiting [Unknown]
  - Malaise [Unknown]
  - Influenza [Unknown]
